FAERS Safety Report 8307027-8 (Version None)
Quarter: 2012Q2

REPORT INFORMATION
  Report Type: 
  Country: None (occurrence: None)
  Receive Date: 20120419
  Receipt Date: 20120417
  Transmission Date: 20120825
  Serious: Yes (Death)
  Sender: FDA-Public Use
  Company Number: ADR-2011-10523

PATIENT
  Age: 31 Year
  Sex: Male

DRUGS (2)
  1. LIORESAL [Suspect]
     Indication: MUSCLE SPASTICITY
     Dosage: 20 MCG, DAILY, INTRATHE
     Route: 037
  2. MORPHINE (INTRATHECAL 30 MCG/ML/DOSE UNK) [Concomitant]

REACTIONS (2)
  - FAT EMBOLISM [None]
  - DEVICE CONNECTION ISSUE [None]
